FAERS Safety Report 13202236 (Version 4)
Quarter: 2019Q1

REPORT INFORMATION
  Report Type: Spontaneous
  Country: US (occurrence: US)
  Receive Date: 20170209
  Receipt Date: 20190315
  Transmission Date: 20190417
  Serious: No
  Sender: FDA-Public Use
  Company Number: US-PFIZER INC-2017056144

PATIENT
  Age: 73 Year
  Sex: Female

DRUGS (3)
  1. IBRANCE [Suspect]
     Active Substance: PALBOCICLIB
     Indication: BREAST CANCER
     Dosage: 125 MG, UNK
  2. IBRANCE [Suspect]
     Active Substance: PALBOCICLIB
     Dosage: 75 MG, CYCLIC (DAILY D1-21 EVERY 28 DAYS)
     Route: 048
  3. LETROZOLE. [Suspect]
     Active Substance: LETROZOLE
     Indication: BREAST CANCER
     Dosage: UNK

REACTIONS (27)
  - Feeling abnormal [Unknown]
  - Ear pain [Not Recovered/Not Resolved]
  - Head discomfort [Recovering/Resolving]
  - Weight decreased [Unknown]
  - Blood uric acid abnormal [Unknown]
  - Decreased appetite [Unknown]
  - Dehydration [Recovering/Resolving]
  - Haemoptysis [Unknown]
  - Viral infection [Recovering/Resolving]
  - Upper respiratory tract infection [Unknown]
  - Asthenia [Unknown]
  - Malaise [Unknown]
  - Cough [Unknown]
  - Fluid retention [Unknown]
  - Blood pressure increased [Unknown]
  - Nasopharyngitis [Recovering/Resolving]
  - Lacrimation increased [Recovering/Resolving]
  - Headache [Recovering/Resolving]
  - Rhinorrhoea [Unknown]
  - Nasal congestion [Unknown]
  - Immune system disorder [Unknown]
  - Weight increased [Unknown]
  - Sinusitis [Recovering/Resolving]
  - Somnolence [Unknown]
  - Dyspnoea [Unknown]
  - Secretion discharge [Not Recovered/Not Resolved]
  - Chills [Unknown]

NARRATIVE: CASE EVENT DATE: 20170127
